FAERS Safety Report 8156455-2 (Version None)
Quarter: 2012Q1

REPORT INFORMATION
  Report Type: 
  Country: None (occurrence: None)
  Receive Date: 20120103
  Receipt Date: 20111025
  Transmission Date: 20120608
  Serious: No
  Sender: FDA-Public Use
  Company Number: AE-2011-002677

PATIENT
  Age: 47 Year
  Sex: Male
  Weight: 67.1324 kg

DRUGS (4)
  1. PEGASYS [Concomitant]
  2. INCIVEK [Suspect]
     Dosage: 2250 MG (750 MG, 3 IN 1 D), ORAL
     Route: 048
     Dates: start: 20111016
  3. RIBAPAK (RIBAVIRIN) [Concomitant]
  4. NORCO [Concomitant]

REACTIONS (2)
  - ORAL HERPES [None]
  - STOMATITIS [None]
